FAERS Safety Report 21718534 (Version 4)
Quarter: 2024Q2

REPORT INFORMATION
  Report Type: Spontaneous
  Country: CA (occurrence: CA)
  Receive Date: 20221212
  Receipt Date: 20240503
  Transmission Date: 20240716
  Serious: Yes (Life-Threatening, Hospitalization, Disabling, Other)
  Sender: FDA-Public Use
  Company Number: CA-CELLTRION INC.-2022CA020623

PATIENT

DRUGS (273)
  1. ADALIMUMAB [Suspect]
     Active Substance: ADALIMUMAB\ISOPROPYL ALCOHOL
     Indication: Rheumatoid arthritis
     Dosage: 40.0 MILLIGRAM
     Route: 065
  2. ADALIMUMAB [Suspect]
     Active Substance: ADALIMUMAB\ISOPROPYL ALCOHOL
     Dosage: 40.0 MILLIGRAM
     Route: 058
  3. RITUXIMAB [Suspect]
     Active Substance: RITUXIMAB
     Indication: Rheumatoid arthritis
     Dosage: UNK
     Route: 065
  4. RITUXIMAB [Suspect]
     Active Substance: RITUXIMAB
     Dosage: UNK
     Route: 065
  5. RITUXIMAB [Suspect]
     Active Substance: RITUXIMAB
     Dosage: UNK
     Route: 050
  6. RITUXIMAB [Suspect]
     Active Substance: RITUXIMAB
     Dosage: UNK
     Route: 042
  7. RITUXIMAB [Suspect]
     Active Substance: RITUXIMAB
     Dosage: UNK
     Route: 042
  8. RITUXIMAB [Suspect]
     Active Substance: RITUXIMAB
     Dosage: UNK
     Route: 058
  9. ABATACEPT [Suspect]
     Active Substance: ABATACEPT
     Indication: Product used for unknown indication
     Route: 065
  10. ACTEMRA [Suspect]
     Active Substance: TOCILIZUMAB
     Indication: Rheumatoid arthritis
     Dosage: 752.8 MILLIGRAM
     Route: 065
  11. ACTEMRA [Suspect]
     Active Substance: TOCILIZUMAB
     Dosage: UNK
     Route: 065
  12. ACTEMRA [Suspect]
     Active Substance: TOCILIZUMAB
     Dosage: UNK
     Route: 065
  13. ACTEMRA [Suspect]
     Active Substance: TOCILIZUMAB
     Dosage: 20 MILLIGRAM
     Route: 065
  14. ACTEMRA [Suspect]
     Active Substance: TOCILIZUMAB
     Dosage: UNK
     Route: 065
  15. ACTEMRA [Suspect]
     Active Substance: TOCILIZUMAB
     Dosage: UNK
     Route: 065
  16. ACTEMRA [Suspect]
     Active Substance: TOCILIZUMAB
     Dosage: UNK
     Route: 065
  17. ACTEMRA [Suspect]
     Active Substance: TOCILIZUMAB
     Dosage: 3011.2 MILLIGRAM
     Route: 065
  18. ALENDRONATE SODIUM [Suspect]
     Active Substance: ALENDRONATE SODIUM
     Indication: Rheumatoid arthritis
     Route: 065
  19. ALENDRONATE SODIUM [Suspect]
     Active Substance: ALENDRONATE SODIUM
     Dosage: UNK
     Route: 065
  20. PREDNISONE [Suspect]
     Active Substance: PREDNISONE
     Indication: Rheumatoid arthritis
     Dosage: 5.0 MILLIGRAM
     Route: 065
  21. PREDNISONE [Suspect]
     Active Substance: PREDNISONE
     Dosage: UNK
     Route: 065
  22. PREDNISONE [Suspect]
     Active Substance: PREDNISONE
     Dosage: UNK
     Route: 065
  23. PREDNISONE [Suspect]
     Active Substance: PREDNISONE
     Dosage: 40.0 MILLIGRAM
     Route: 065
  24. CALCIUM [Suspect]
     Active Substance: CALCIUM
     Indication: Product used for unknown indication
     Route: 065
  25. CALCIUM [Suspect]
     Active Substance: CALCIUM
     Indication: Product used for unknown indication
     Route: 065
  26. CALCIUM CARBONATE [Suspect]
     Active Substance: CALCIUM CARBONATE
     Indication: Product used for unknown indication
     Route: 065
  27. CALCIUM GLUBIONATE [Suspect]
     Active Substance: CALCIUM GLUBIONATE
     Indication: Product used for unknown indication
     Route: 065
  28. CELEBREX [Suspect]
     Active Substance: CELECOXIB
     Indication: Product used for unknown indication
     Dosage: 1 EVERY 1 DAYS
     Route: 065
  29. CETIRIZINE [Suspect]
     Active Substance: CETIRIZINE HYDROCHLORIDE
     Indication: Product used for unknown indication
     Route: 065
  30. CETIRIZINE [Suspect]
     Active Substance: CETIRIZINE HYDROCHLORIDE
     Dosage: 10.0 MILLIGRAM
     Route: 065
  31. CETIRIZINE HYDROCHLORIDE [Suspect]
     Active Substance: CETIRIZINE HYDROCHLORIDE
     Indication: Rheumatoid arthritis
     Dosage: UNK
     Route: 065
  32. CETIRIZINE HYDROCHLORIDE [Suspect]
     Active Substance: CETIRIZINE HYDROCHLORIDE
     Dosage: 25.0 MILLIGRAM
     Route: 065
  33. CETIRIZINE HYDROCHLORIDE [Suspect]
     Active Substance: CETIRIZINE HYDROCHLORIDE
     Dosage: 10.0 MILLIGRAM
     Route: 065
  34. CHLORAPREP [Suspect]
     Active Substance: CHLORHEXIDINE GLUCONATE\ISOPROPYL ALCOHOL
     Indication: Product used for unknown indication
     Route: 065
  35. CHLORHEXIDINE GLUCONATE [Suspect]
     Active Substance: CHLORHEXIDINE GLUCONATE
     Indication: Product used for unknown indication
     Route: 065
  36. CHLORHEXIDINE GLUCONATE [Suspect]
     Active Substance: CHLORHEXIDINE GLUCONATE
     Dosage: UNK
     Route: 065
  37. CHLORHEXIDINE GLUCONATE [Suspect]
     Active Substance: CHLORHEXIDINE GLUCONATE
     Dosage: UNK
     Route: 065
  38. CHOLECALCIFEROL [Suspect]
     Active Substance: CHOLECALCIFEROL
     Indication: Product used for unknown indication
     Route: 065
  39. CIMZIA [Suspect]
     Active Substance: CERTOLIZUMAB PEGOL
     Indication: Rheumatoid arthritis
     Dosage: 400.0 MILLIGRAM
     Route: 065
  40. CIMZIA [Suspect]
     Active Substance: CERTOLIZUMAB PEGOL
     Dosage: UNK
     Route: 065
  41. CORTISONE ACETATE [Suspect]
     Active Substance: CORTISONE ACETATE
     Indication: Rheumatoid arthritis
     Dosage: UNK
     Route: 065
  42. CORTISONE ACETATE [Suspect]
     Active Substance: CORTISONE ACETATE
     Dosage: UNK
     Route: 065
  43. CORTISONE ACETATE [Suspect]
     Active Substance: CORTISONE ACETATE
     Dosage: UNK
     Route: 065
  44. CORTISONE ACETATE [Suspect]
     Active Substance: CORTISONE ACETATE
     Indication: Rheumatoid arthritis
     Dosage: 25.0 MILLIGRAM
     Route: 065
  45. CORTISONE ACETATE [Suspect]
     Active Substance: CORTISONE ACETATE
     Dosage: 25 MILLIGRAM
     Route: 065
  46. CORTISONE ACETATE [Suspect]
     Active Substance: CORTISONE ACETATE
     Dosage: UNK
     Route: 065
  47. CORTISONE ACETATE [Suspect]
     Active Substance: CORTISONE ACETATE
     Dosage: 25.0 MILLIGRAM
     Route: 065
  48. CORTISONE ACETATE [Suspect]
     Active Substance: CORTISONE ACETATE
     Dosage: UNK
     Route: 065
  49. COSENTYX [Suspect]
     Active Substance: SECUKINUMAB
     Indication: Psoriatic arthropathy
     Route: 065
  50. COSENTYX [Suspect]
     Active Substance: SECUKINUMAB
     Indication: Psoriatic arthropathy
     Route: 065
  51. COSENTYX [Suspect]
     Active Substance: SECUKINUMAB
     Indication: Rheumatoid arthritis
     Dosage: UNK
     Route: 005
  52. DESOXIMETASONE [Suspect]
     Active Substance: DESOXIMETASONE
     Indication: Rheumatoid arthritis
     Route: 065
  53. DESOXIMETASONE [Suspect]
     Active Substance: DESOXIMETASONE
     Dosage: UNK
     Route: 065
  54. DICLOFENAC SODIUM [Suspect]
     Active Substance: DICLOFENAC\DICLOFENAC SODIUM
     Indication: Product used for unknown indication
     Dosage: UNK
     Route: 065
  55. DICLOFENAC SODIUM [Suspect]
     Active Substance: DICLOFENAC\DICLOFENAC SODIUM
     Dosage: 50 G
     Route: 065
  56. DICLOFENAC SODIUM [Suspect]
     Active Substance: DICLOFENAC\DICLOFENAC SODIUM
     Dosage: 50 MG
     Route: 065
  57. DICLOFENAC SODIUM [Suspect]
     Active Substance: DICLOFENAC\DICLOFENAC SODIUM
     Indication: Product used for unknown indication
     Dosage: UNK
  58. DICLOFENAC SODIUM [Suspect]
     Active Substance: DICLOFENAC\DICLOFENAC SODIUM
     Dosage: 50.0 MILLIGRAM
     Route: 065
  59. DICLOFENAC SODIUM [Suspect]
     Active Substance: DICLOFENAC\DICLOFENAC SODIUM
     Dosage: UNK
     Route: 065
  60. DICLOFENAC SODIUM [Suspect]
     Active Substance: DICLOFENAC\DICLOFENAC SODIUM
     Dosage: 50.0 GRAM
     Route: 065
  61. DICLOFENAC SODIUM [Suspect]
     Active Substance: DICLOFENAC\DICLOFENAC SODIUM
     Dosage: UNK
     Route: 058
  62. DOXYCYCLINE HYDROCHLORIDE [Suspect]
     Active Substance: DOXYCYCLINE HYDROCHLORIDE
     Indication: Product used for unknown indication
     Dosage: 40.0 MILLIGRAM
     Route: 065
  63. ENBREL [Suspect]
     Active Substance: BENZYL ALCOHOL\ETANERCEPT
     Indication: Rheumatoid arthritis
     Route: 065
  64. ENBREL [Suspect]
     Active Substance: BENZYL ALCOHOL\ETANERCEPT
     Dosage: 20.0 MILLIGRAM, 1 EVERY 1 WEEKS
     Route: 065
  65. ENBREL [Suspect]
     Active Substance: BENZYL ALCOHOL\ETANERCEPT
     Dosage: UNK
     Route: 065
  66. ENBREL [Suspect]
     Active Substance: BENZYL ALCOHOL\ETANERCEPT
     Dosage: 50.0 MILLIGRAM, 1 EVERY 1 WEEKS
     Route: 065
  67. ERELZI [Suspect]
     Active Substance: ETANERCEPT-SZZS
     Indication: Rheumatoid arthritis
     Dosage: 20.0 UNKNOWN
     Route: 065
  68. ERELZI [Suspect]
     Active Substance: ETANERCEPT-SZZS
     Dosage: UNK
     Route: 065
  69. ERELZI [Suspect]
     Active Substance: ETANERCEPT-SZZS
     Dosage: 50.0 MILLIGRAM, 1 EVERY 1 WEEKS
     Route: 065
  70. ERELZI [Suspect]
     Active Substance: ETANERCEPT-SZZS
     Indication: Rheumatoid arthritis
     Route: 065
  71. ERELZI [Suspect]
     Active Substance: ETANERCEPT-SZZS
     Dosage: UNK
     Route: 065
  72. ERELZI [Suspect]
     Active Substance: ETANERCEPT-SZZS
     Dosage: 50 MG, 1 EVERY 1 WEEK
     Route: 065
  73. ERELZI [Suspect]
     Active Substance: ETANERCEPT-SZZS
     Dosage: 1 EVERY 1 WEEK
     Route: 065
  74. FOLIC ACID [Suspect]
     Active Substance: FOLIC ACID
     Indication: Rheumatoid arthritis
     Dosage: 1.0 MILLIGRAM
     Route: 065
  75. FOLIC ACID [Suspect]
     Active Substance: FOLIC ACID
     Dosage: UNK
     Route: 065
  76. FOLIC ACID [Suspect]
     Active Substance: FOLIC ACID
     Dosage: 0.5 MILLIGRAM
     Route: 065
  77. FOLIC ACID [Suspect]
     Active Substance: FOLIC ACID
     Dosage: 3.0 MILLIGRAM
     Route: 065
  78. FOLIC ACID [Suspect]
     Active Substance: FOLIC ACID
     Dosage: 1.0 MILLIGRAM
     Route: 065
  79. FOLIC ACID [Suspect]
     Active Substance: FOLIC ACID
     Dosage: 50.0 MILLIGRAM
     Route: 065
  80. FOLIC ACID [Suspect]
     Active Substance: FOLIC ACID
     Dosage: 5.0 MILLIGRAM
     Route: 065
  81. FOLIC ACID [Suspect]
     Active Substance: FOLIC ACID
     Dosage: 500.0 MILLIGRAM
     Route: 065
  82. FOLIC ACID [Suspect]
     Active Substance: FOLIC ACID
     Indication: Rheumatoid arthritis
     Dosage: 50 MG
     Route: 065
  83. FOLIC ACID [Suspect]
     Active Substance: FOLIC ACID
     Dosage: 0.5 MG
     Route: 065
  84. FOLIC ACID [Suspect]
     Active Substance: FOLIC ACID
     Dosage: 1 MG
     Route: 065
  85. FOLIC ACID [Suspect]
     Active Substance: FOLIC ACID
     Dosage: 500 MG
     Route: 065
  86. FOLIC ACID [Suspect]
     Active Substance: FOLIC ACID
     Dosage: UNK
     Route: 065
  87. FOLIC ACID [Suspect]
     Active Substance: FOLIC ACID
     Dosage: 1 MG
     Route: 065
  88. FOLIC ACID [Suspect]
     Active Substance: FOLIC ACID
     Dosage: 25 MG
     Route: 065
  89. FOLIC ACID [Suspect]
     Active Substance: FOLIC ACID
     Dosage: 25 MG
     Route: 048
  90. FOLIC ACID [Suspect]
     Active Substance: FOLIC ACID
     Dosage: 5 MG
     Route: 048
  91. FOLIC ACID [Suspect]
     Active Substance: FOLIC ACID
     Dosage: 5 MG
     Route: 065
  92. FOLIC ACID [Suspect]
     Active Substance: FOLIC ACID
     Dosage: 1 MG
     Route: 058
  93. FOLIC ACID [Suspect]
     Active Substance: FOLIC ACID
     Dosage: 5 MG
     Route: 065
  94. FOLIC ACID [Suspect]
     Active Substance: FOLIC ACID
     Dosage: 15 MG
     Route: 065
  95. FOLIC ACID [Suspect]
     Active Substance: FOLIC ACID
     Dosage: 3 MG
     Route: 065
  96. FOSAMAX [Suspect]
     Active Substance: ALENDRONATE SODIUM
     Indication: Rheumatoid arthritis
     Route: 065
  97. FOSAMAX [Suspect]
     Active Substance: ALENDRONATE SODIUM
     Dosage: UNK
     Route: 065
  98. HUMIRA [Suspect]
     Active Substance: ADALIMUMAB
     Indication: Rheumatoid arthritis
     Dosage: UNK
     Route: 065
  99. HUMIRA [Suspect]
     Active Substance: ADALIMUMAB
     Dosage: UNK
     Route: 065
  100. HUMIRA [Suspect]
     Active Substance: ADALIMUMAB
     Dosage: 40.0 MILLIGRAM
     Route: 065
  101. HYDROCORTISONE [Suspect]
     Active Substance: HYDROCORTISONE
     Indication: Product used for unknown indication
     Route: 058
  102. HYDROCORTISONE ACETATE [Suspect]
     Active Substance: HYDROCORTISONE ACETATE
     Indication: Product used for unknown indication
     Route: 065
  103. HYDROXYCHLOROQUINE [Suspect]
     Active Substance: HYDROXYCHLOROQUINE
     Indication: Rheumatoid arthritis
     Dosage: UNK
     Route: 065
  104. HYDROXYCHLOROQUINE [Suspect]
     Active Substance: HYDROXYCHLOROQUINE
     Dosage: 400.0 MILLIGRAM, 1 EVERY 1 DAYS
     Route: 065
  105. HYDROXYCHLOROQUINE [Suspect]
     Active Substance: HYDROXYCHLOROQUINE
     Dosage: UNK
     Route: 065
  106. HYDROXYCHLOROQUINE SULFATE [Suspect]
     Active Substance: HYDROXYCHLOROQUINE SULFATE
     Indication: Rheumatoid arthritis
     Dosage: 400.0 MILLIGRAM, 1 EVERY 1 DAYS
     Route: 065
  107. HYDROXYCHLOROQUINE SULFATE [Suspect]
     Active Substance: HYDROXYCHLOROQUINE SULFATE
     Dosage: 420.0 MILLIGRAM, 1 EVERY 1 DAYS
     Route: 065
  108. HYDROXYCHLOROQUINE SULFATE [Suspect]
     Active Substance: HYDROXYCHLOROQUINE SULFATE
     Dosage: UNK
     Route: 065
  109. HYDROXYCHLOROQUINE SULFATE [Suspect]
     Active Substance: HYDROXYCHLOROQUINE SULFATE
     Dosage: 400.0 MILLIGRAM, 1 EVERY 1 DAYS
     Route: 065
  110. HYDROXYCHLOROQUINE SULFATE [Suspect]
     Active Substance: HYDROXYCHLOROQUINE SULFATE
     Dosage: UNK
     Route: 065
  111. HYDROXYCHLOROQUINE SULFATE [Suspect]
     Active Substance: HYDROXYCHLOROQUINE SULFATE
     Dosage: 420.0 MILLIGRAM, 1 EVERY 1 DAYS
     Route: 065
  112. HYDROXYCHLOROQUINE SULFATE [Suspect]
     Active Substance: HYDROXYCHLOROQUINE SULFATE
     Dosage: 40.0 MILLIGRAM, 1 EVERY 1 DAYS
     Route: 065
  113. HYDROXYCHLOROQUINE SULFATE [Suspect]
     Active Substance: HYDROXYCHLOROQUINE SULFATE
     Dosage: 400.0 MILLIGRAM, 1 EVERY 1 DAYS
     Route: 065
  114. INFLIXIMAB [Suspect]
     Active Substance: INFLIXIMAB
     Indication: Rheumatoid arthritis
     Route: 065
  115. INFLIXIMAB [Suspect]
     Active Substance: INFLIXIMAB
     Dosage: 400.0 MILLIGRAM
     Route: 065
  116. LEFLUNOMIDE [Suspect]
     Active Substance: LEFLUNOMIDE
     Indication: Rheumatoid arthritis
     Dosage: UNK
     Route: 065
  117. LEFLUNOMIDE [Suspect]
     Active Substance: LEFLUNOMIDE
     Route: 065
  118. LEFLUNOMIDE [Suspect]
     Active Substance: LEFLUNOMIDE
     Dosage: 20.0 MILLIGRAM
     Route: 065
  119. LEFLUNOMIDE [Suspect]
     Active Substance: LEFLUNOMIDE
     Indication: Product used for unknown indication
     Route: 065
  120. LEFLUNOMIDE [Suspect]
     Active Substance: LEFLUNOMIDE
     Dosage: UNK
     Route: 065
  121. LEFLUNOMIDE [Suspect]
     Active Substance: LEFLUNOMIDE
     Indication: Rheumatoid arthritis
     Dosage: UNK
     Route: 065
  122. LEFLUNOMIDE [Suspect]
     Active Substance: LEFLUNOMIDE
     Dosage: UNK
     Route: 065
  123. LEFLUNOMIDE [Suspect]
     Active Substance: LEFLUNOMIDE
     Dosage: UNK
     Route: 065
  124. LEFLUNOMIDE [Suspect]
     Active Substance: LEFLUNOMIDE
     Dosage: UNK
     Route: 065
  125. LEFLUNOMIDE [Suspect]
     Active Substance: LEFLUNOMIDE
     Dosage: 20 MG
     Route: 065
  126. LEFLUNOMIDE [Suspect]
     Active Substance: LEFLUNOMIDE
     Dosage: UNK
     Route: 048
  127. LEFLUNOMIDE [Suspect]
     Active Substance: LEFLUNOMIDE
     Dosage: UNK
     Route: 048
  128. LEFLUNOMIDE [Suspect]
     Active Substance: LEFLUNOMIDE
     Dosage: UNK
     Route: 048
  129. FLUMETHASONE PIVALATE [Suspect]
     Active Substance: FLUMETHASONE PIVALATE
     Indication: Rheumatoid arthritis
  130. LYRICA [Suspect]
     Active Substance: PREGABALIN
     Indication: Product used for unknown indication
  131. METHOTREXATE [Suspect]
     Active Substance: METHOTREXATE
     Indication: Rheumatoid arthritis
     Dosage: 25.0 MILLIGRAM, 1 EVERY 1 WEEKS
     Route: 065
  132. METHOTREXATE [Suspect]
     Active Substance: METHOTREXATE
     Dosage: UNK
     Route: 065
  133. METHOTREXATE [Suspect]
     Active Substance: METHOTREXATE
     Dosage: UNK
     Route: 065
  134. METHOTREXATE [Suspect]
     Active Substance: METHOTREXATE
     Dosage: 1.0 MILLIGRAM, 1 EVERY 1 DAYS
     Route: 065
  135. METHOTREXATE [Suspect]
     Active Substance: METHOTREXATE
     Dosage: 20.0 MILLIGRAM, 1 EVERY 1 DAYS
     Route: 065
  136. METHOTREXATE [Suspect]
     Active Substance: METHOTREXATE
     Dosage: 25.0 MILLIGRAM, 1 EVERY 1 WEEKS
     Route: 065
  137. METHOTREXATE [Suspect]
     Active Substance: METHOTREXATE
     Dosage: UNK
     Route: 065
  138. METHOTREXATE [Suspect]
     Active Substance: METHOTREXATE
     Dosage: 20.0 MILLIGRAM, 1 EVERY 1 DAYS
     Route: 065
  139. METHOTREXATE [Suspect]
     Active Substance: METHOTREXATE
     Dosage: UNK
     Route: 065
  140. METHOTREXATE [Suspect]
     Active Substance: METHOTREXATE
     Dosage: 25.0 MILLIGRAM
     Route: 065
  141. METHOTREXATE [Suspect]
     Active Substance: METHOTREXATE
     Dosage: 1 EVERY 1 DAYS
     Route: 065
  142. METHOTREXATE [Suspect]
     Active Substance: METHOTREXATE
     Dosage: 25.0 MILLIGRAM
     Route: 065
  143. METHOTREXATE [Suspect]
     Active Substance: METHOTREXATE
     Dosage: 15.0 MILLIGRAM, 1 EVERY 1 DAYS
     Route: 065
  144. METHOTREXATE [Suspect]
     Active Substance: METHOTREXATE
     Dosage: 25.0 MILLIGRAM, 1 EVERY 1 DAYS
     Route: 065
  145. METHOTREXATE [Suspect]
     Active Substance: METHOTREXATE
     Indication: Rheumatoid arthritis
     Dosage: 25 MG, 1 EVERY 1 DAY
     Route: 048
  146. METHOTREXATE [Suspect]
     Active Substance: METHOTREXATE
     Dosage: 25 MG
     Route: 048
  147. METHOTREXATE [Suspect]
     Active Substance: METHOTREXATE
     Dosage: 20 MG
     Route: 048
  148. METHOTREXATE [Suspect]
     Active Substance: METHOTREXATE
     Dosage: 25 MG
     Route: 065
  149. METHOTREXATE [Suspect]
     Active Substance: METHOTREXATE
     Dosage: 15 MG, 1 EVERY 1 DAY
     Route: 065
  150. METHOTREXATE [Suspect]
     Active Substance: METHOTREXATE
     Dosage: 20 MG, 1 EVERY 1 WEEK
     Route: 048
  151. METHOTREXATE [Suspect]
     Active Substance: METHOTREXATE
     Dosage: UNK
     Route: 065
  152. METHOTREXATE [Suspect]
     Active Substance: METHOTREXATE
     Dosage: 225 MG
     Route: 048
  153. METHOTREXATE [Suspect]
     Active Substance: METHOTREXATE
     Dosage: 25 MG
     Route: 013
  154. METHOTREXATE [Suspect]
     Active Substance: METHOTREXATE
     Dosage: 1 EVERY 1 WEEK
     Route: 048
  155. METHOTREXATE [Suspect]
     Active Substance: METHOTREXATE
     Dosage: 25 MG
     Route: 058
  156. METHOTREXATE [Suspect]
     Active Substance: METHOTREXATE
     Dosage: UNK
     Route: 035
  157. METHOTREXATE [Suspect]
     Active Substance: METHOTREXATE
     Dosage: 25 MG, 1 EVERY 1 WEEK
     Route: 048
  158. METHOTREXATE [Suspect]
     Active Substance: METHOTREXATE
     Dosage: 1 DF, 1 EVERY 1 DAY
     Route: 048
  159. METHOTREXATE [Suspect]
     Active Substance: METHOTREXATE
     Dosage: 20 MG, 1 EVERY 1 DAY
     Route: 013
  160. METHOTREXATE [Suspect]
     Active Substance: METHOTREXATE
     Dosage: 15 MG, 1 EVERY 1 DAY
     Route: 048
  161. METHOTREXATE [Suspect]
     Active Substance: METHOTREXATE
     Dosage: 1 DF, 1 EVERY 1 DAY
     Route: 048
  162. METHOTREXATE [Suspect]
     Active Substance: METHOTREXATE
     Dosage: UNK
     Route: 048
  163. METHOTREXATE [Suspect]
     Active Substance: METHOTREXATE
     Dosage: UNK
     Route: 058
  164. METHOTREXATE [Suspect]
     Active Substance: METHOTREXATE
     Dosage: 20 MG, 1 EVERY 1 WEEK
     Route: 013
  165. METHOTREXATE [Suspect]
     Active Substance: METHOTREXATE
     Dosage: 1 EVERY 1 DAY
     Route: 065
  166. METHOTREXATE [Suspect]
     Active Substance: METHOTREXATE
     Dosage: 20 MG, 1 EVERY 1 DAY
     Route: 065
  167. METHOTREXATE [Suspect]
     Active Substance: METHOTREXATE
     Dosage: 25 MG, 1 EVERY 1 WEEK
     Route: 065
  168. METHOTREXATE [Suspect]
     Active Substance: METHOTREXATE
     Dosage: 1 MG, 1 EVERY 1 DAY
     Route: 065
  169. MYCOPHENOLATE MOFETIL HYDROCHLORIDE [Suspect]
     Active Substance: MYCOPHENOLATE MOFETIL HYDROCHLORIDE
     Indication: Product used for unknown indication
     Route: 065
  170. NAPROXEN SODIUM [Suspect]
     Active Substance: NAPROXEN\NAPROXEN SODIUM
     Indication: Rheumatoid arthritis
     Dosage: 500.0 MILLIGRAM, 2 EVERY 1 DAYS
     Route: 065
  171. ORENCIA [Suspect]
     Active Substance: ABATACEPT
     Indication: Rheumatoid arthritis
     Dosage: 3.0 MILLIGRAM, 2 EVERY 1 DAYS
     Route: 065
  172. ORENCIA [Suspect]
     Active Substance: ABATACEPT
     Dosage: UNK
     Route: 065
  173. ORENCIA [Suspect]
     Active Substance: ABATACEPT
     Dosage: UNK
     Route: 065
  174. ORENCIA [Suspect]
     Active Substance: ABATACEPT
     Dosage: UNK
     Route: 065
  175. OTEZLA [Suspect]
     Active Substance: APREMILAST
     Indication: Product used for unknown indication
     Route: 065
  176. OTEZLA [Suspect]
     Active Substance: APREMILAST
     Dosage: 3.0 MILLIGRAM, 2 EVERY 1 DAYS
     Route: 065
  177. OTEZLA [Suspect]
     Active Substance: APREMILAST
     Dosage: 3 MILLIGRAM
     Route: 065
  178. OXYCODONE [Suspect]
     Active Substance: OXYCODONE\OXYCODONE HYDROCHLORIDE
     Indication: Product used for unknown indication
     Route: 065
  179. OXYCODONE HYDROCHLORIDE [Suspect]
     Active Substance: OXYCODONE HYDROCHLORIDE
     Indication: Product used for unknown indication
     Route: 065
  180. OXYCODONE HYDROCHLORIDE [Suspect]
     Active Substance: OXYCODONE HYDROCHLORIDE
     Indication: Product used for unknown indication
     Route: 065
  181. OXYCODONE HYDROCHLORIDE [Suspect]
     Active Substance: OXYCODONE HYDROCHLORIDE
     Indication: Product used for unknown indication
     Dosage: UNK
     Route: 065
  182. OXYCODONE HYDROCHLORIDE [Suspect]
     Active Substance: OXYCODONE HYDROCHLORIDE
     Dosage: UNK
     Route: 065
  183. OXYCODONE HYDROCHLORIDE [Suspect]
     Active Substance: OXYCODONE HYDROCHLORIDE
     Dosage: UNK
     Route: 065
  184. OXYCODONE TEREPHTHALATE [Suspect]
     Active Substance: OXYCODONE TEREPHTHALATE
     Indication: Product used for unknown indication
     Route: 065
  185. PERIOGARD [Suspect]
     Active Substance: CHLORHEXIDINE GLUCONATE
     Indication: Product used for unknown indication
     Route: 065
  186. PHTHALYLSULFATHIAZOLE [Suspect]
     Active Substance: PHTHALYLSULFATHIAZOLE
     Indication: Rheumatoid arthritis
     Dosage: 1000.0 MILLIGRAM, 2 EVERY 1 DAYS
     Route: 065
  187. PHTHALYLSULFATHIAZOLE [Suspect]
     Active Substance: PHTHALYLSULFATHIAZOLE
     Dosage: 400.0 MILLIGRAM, 1 EVERY 1 DAYS
     Route: 065
  188. PHTHALYLSULFATHIAZOLE [Suspect]
     Active Substance: PHTHALYLSULFATHIAZOLE
     Dosage: 500.0 MILLIGRAM, 2 EVERY 1 DAYS
     Route: 065
  189. PHTHALYLSULFATHIAZOLE [Suspect]
     Active Substance: PHTHALYLSULFATHIAZOLE
     Dosage: UNK
     Route: 065
  190. PHTHALYLSULFATHIAZOLE [Suspect]
     Active Substance: PHTHALYLSULFATHIAZOLE
     Dosage: UNK
     Route: 065
  191. PLAQUENIL [Suspect]
     Active Substance: HYDROXYCHLOROQUINE SULFATE
     Indication: Rheumatoid arthritis
     Dosage: 400.0 MILLIGRAM, 1 EVERY 1 DAYS
     Route: 065
  192. PLAQUENIL [Suspect]
     Active Substance: HYDROXYCHLOROQUINE SULFATE
     Dosage: 1 EVERY 1 DAYS
     Route: 065
  193. PLAQUENIL [Suspect]
     Active Substance: HYDROXYCHLOROQUINE SULFATE
     Dosage: UNK
     Route: 065
  194. PLAQUENIL [Suspect]
     Active Substance: HYDROXYCHLOROQUINE SULFATE
     Dosage: 400.0 MILLIGRAM, 1 EVERY 1 DAYS
     Route: 065
  195. PREDNISONE [Suspect]
     Active Substance: PREDNISONE
     Indication: Rheumatoid arthritis
     Dosage: 7.5 MILLIGRAM
     Route: 065
  196. PREDNISONE [Suspect]
     Active Substance: PREDNISONE
     Dosage: UNK
  197. PREDNISONE [Suspect]
     Active Substance: PREDNISONE
     Dosage: 5.0 MILLIGRAM
     Route: 065
  198. PREDNISONE [Suspect]
     Active Substance: PREDNISONE
     Dosage: UNK
     Route: 065
  199. PREDNISONE [Suspect]
     Active Substance: PREDNISONE
     Dosage: UNK
     Route: 065
  200. PREDNISONE [Suspect]
     Active Substance: PREDNISONE
     Dosage: 40.0 MILLIGRAM
     Route: 065
  201. PREDNISONE [Suspect]
     Active Substance: PREDNISONE
     Dosage: 1.0 MILLIGRAM
     Route: 065
  202. PSEUDOEPHEDRINE [Suspect]
     Active Substance: PSEUDOEPHEDRINE
     Indication: Product used for unknown indication
     Route: 065
  203. PSEUDOEPHEDRINE HYDROCHLORIDE [Suspect]
     Active Substance: PSEUDOEPHEDRINE HYDROCHLORIDE
     Indication: Rheumatoid arthritis
     Route: 065
  204. PSEUDOEPHEDRINE HYDROCHLORIDE [Suspect]
     Active Substance: PSEUDOEPHEDRINE HYDROCHLORIDE
     Dosage: UNK
     Route: 065
  205. CETIRIZINE HYDROCHLORIDE\PSEUDOEPHEDRINE HYDROCHLORIDE [Suspect]
     Active Substance: CETIRIZINE HYDROCHLORIDE\PSEUDOEPHEDRINE HYDROCHLORIDE
     Indication: Rheumatoid arthritis
     Dosage: 10.0 MILLIGRAM
     Route: 065
  206. CETIRIZINE HYDROCHLORIDE\PSEUDOEPHEDRINE HYDROCHLORIDE [Suspect]
     Active Substance: CETIRIZINE HYDROCHLORIDE\PSEUDOEPHEDRINE HYDROCHLORIDE
     Dosage: UNK
     Route: 065
  207. REMICADE [Suspect]
     Active Substance: INFLIXIMAB
     Indication: Rheumatoid arthritis
     Dosage: UNK
     Route: 065
  208. REMICADE [Suspect]
     Active Substance: INFLIXIMAB
     Dosage: UNK
     Route: 065
  209. SIMPONI [Suspect]
     Active Substance: GOLIMUMAB
     Indication: Rheumatoid arthritis
     Dosage: 50.0 MILLIGRAM, 1 EVERY 1 MONTHS
     Route: 065
  210. SIMPONI [Suspect]
     Active Substance: GOLIMUMAB
     Dosage: UNK
     Route: 065
  211. SIMPONI [Suspect]
     Active Substance: GOLIMUMAB
     Dosage: UNK
     Route: 065
  212. SIMPONI [Suspect]
     Active Substance: GOLIMUMAB
     Dosage: UNK
     Route: 065
  213. STELARA [Suspect]
     Active Substance: USTEKINUMAB
     Indication: Product used for unknown indication
     Dosage: 45.0 MILLIGRAM
     Route: 065
  214. STELARA [Suspect]
     Active Substance: USTEKINUMAB
     Dosage: 45.0 MILLIGRAM
     Route: 065
  215. STELARA [Suspect]
     Active Substance: USTEKINUMAB
     Dosage: 45.0 MILLIGRAM
     Route: 065
  216. STELARA [Suspect]
     Active Substance: USTEKINUMAB
     Dosage: UNK
     Route: 065
  217. STELARA [Suspect]
     Active Substance: USTEKINUMAB
     Dosage: UNK
     Route: 065
  218. SULFAMETHOXAZOLE [Suspect]
     Active Substance: SULFAMETHOXAZOLE
     Indication: Product used for unknown indication
     Route: 065
  219. SULFAMETHOXAZOLE AND TRIMETHOPRIM [Suspect]
     Active Substance: SULFAMETHOXAZOLE\TRIMETHOPRIM
     Indication: Product used for unknown indication
     Route: 065
  220. SULFASALAZINE [Suspect]
     Active Substance: SULFASALAZINE
     Indication: Rheumatoid arthritis
     Dosage: 500.0 MILLIGRAM
     Route: 065
  221. SULFASALAZINE [Suspect]
     Active Substance: SULFASALAZINE
     Dosage: 1.0 GRAM, 2 EVERY 1 DAYS
     Route: 065
  222. SULFASALAZINE [Suspect]
     Active Substance: SULFASALAZINE
     Dosage: 1000.0 MILLIGRAM, 2 EVERY 1 DAYS
     Route: 065
  223. SULFASALAZINE [Suspect]
     Active Substance: SULFASALAZINE
     Dosage: 1 GRAM, 1 EVERY 1 DAYS
     Route: 065
  224. SULFASALAZINE [Suspect]
     Active Substance: SULFASALAZINE
     Dosage: 2000.0 MILLIGRAM
     Route: 065
  225. SULFASALAZINE [Suspect]
     Active Substance: SULFASALAZINE
     Dosage: 1.0 GRAM, 2 EVERY 1 DAYS
     Route: 065
  226. SULFASALAZINE [Suspect]
     Active Substance: SULFASALAZINE
     Route: 065
  227. SULFASALAZINE [Suspect]
     Active Substance: SULFASALAZINE
     Dosage: 500.0 MILLIGRAM
     Route: 065
  228. TOPICORT [Suspect]
     Active Substance: DESOXIMETASONE
     Indication: Rheumatoid arthritis
     Route: 065
  229. TOPICORT [Suspect]
     Active Substance: DESOXIMETASONE
     Route: 065
  230. TOPICORT [Suspect]
     Active Substance: DESOXIMETASONE
     Route: 065
  231. VITAMIN C [Suspect]
     Active Substance: ASCORBIC ACID
     Indication: Product used for unknown indication
     Route: 065
  232. HYALURONIDASE (HUMAN RECOMBINANT) [Suspect]
     Active Substance: HYALURONIDASE (HUMAN RECOMBINANT)
     Indication: Rheumatoid arthritis
     Route: 065
  233. HYALURONIDASE (HUMAN RECOMBINANT) [Suspect]
     Active Substance: HYALURONIDASE (HUMAN RECOMBINANT)
     Route: 065
  234. HYALURONIDASE (HUMAN RECOMBINANT) [Suspect]
     Active Substance: HYALURONIDASE (HUMAN RECOMBINANT)
     Route: 065
  235. XELJANZ [Suspect]
     Active Substance: TOFACITINIB CITRATE
     Indication: Rheumatoid arthritis
     Dosage: 5.0 MILLIGRAM, 2 EVERY 1 DAYS
     Route: 065
  236. XELJANZ [Suspect]
     Active Substance: TOFACITINIB CITRATE
     Dosage: 5.0 MILLIGRAM, 1 EVERY 1 WEEKS
     Route: 065
  237. XELJANZ [Suspect]
     Active Substance: TOFACITINIB CITRATE
     Dosage: 5.0 MILLIGRAM, 2 EVERY 1 DAYS
     Route: 065
  238. XELJANZ [Suspect]
     Active Substance: TOFACITINIB CITRATE
     Dosage: 5.0 MILLIGRAM, 1 EVERY 1 DAYS
     Route: 065
  239. XELJANZ [Suspect]
     Active Substance: TOFACITINIB CITRATE
     Route: 065
  240. ACETAMINOPHEN [Concomitant]
     Active Substance: ACETAMINOPHEN
  241. PANTOPRAZOLE SODIUM ANHYDROUS [Concomitant]
     Active Substance: PANTOPRAZOLE SODIUM ANHYDROUS
     Route: 065
  242. ACETAMINOPHEN [Concomitant]
     Active Substance: ACETAMINOPHEN
  243. ATIVAN [Concomitant]
     Active Substance: LORAZEPAM
  244. CAFFEINE [Concomitant]
     Active Substance: CAFFEINE
  245. CODEINE PHOSPHATE [Concomitant]
     Active Substance: CODEINE PHOSPHATE
     Route: 065
  246. DESOGESTREL AND ETHINYL ESTRADIOL [Concomitant]
     Active Substance: DESOGESTREL\ETHINYL ESTRADIOL
  247. DEXAMETHASONE SODIUM SUCCINATE [Concomitant]
     Active Substance: DEXAMETHASONE SODIUM SUCCINATE
     Route: 065
  248. ERGOCALCIFEROL [Concomitant]
     Active Substance: ERGOCALCIFEROL
  249. GLUCOSAMINE [Concomitant]
     Active Substance: GLUCOSAMINE
  250. IBUPROFEN [Concomitant]
     Active Substance: IBUPROFEN
  251. LANSOPRAZOLE [Concomitant]
     Active Substance: LANSOPRAZOLE
  252. LEVOTHYROXINE SODIUM [Concomitant]
     Active Substance: LEVOTHYROXINE SODIUM
     Route: 065
  253. LISINOPRIL [Concomitant]
     Active Substance: LISINOPRIL
  254. LORAZEPAM [Concomitant]
     Active Substance: LORAZEPAM
     Route: 065
  255. MAGNESIUM CITRATE [Concomitant]
     Active Substance: MAGNESIUM CITRATE
  256. MARVELON [Concomitant]
     Active Substance: DESOGESTREL\ETHINYL ESTRADIOL
  257. MELOXICAM [Concomitant]
     Active Substance: MELOXICAM
  258. PANTOPRAZOLE SODIUM [Concomitant]
     Active Substance: PANTOPRAZOLE SODIUM
  259. PANTOPRAZOLE SODIUM [Concomitant]
     Active Substance: PANTOPRAZOLE SODIUM
  260. PIROXICAM [Concomitant]
     Active Substance: PIROXICAM
  261. PREDNISOLONE SODIUM PHOSPHATE [Concomitant]
     Active Substance: PREDNISOLONE SODIUM PHOSPHATE
  262. PREVACID [Concomitant]
     Active Substance: LANSOPRAZOLE
  263. QUETIAPINE FUMARATE [Concomitant]
     Active Substance: QUETIAPINE FUMARATE
  264. RAMIPRIL [Concomitant]
     Active Substance: RAMIPRIL
  265. RISEDRONATE SODIUM [Concomitant]
     Active Substance: RISEDRONATE SODIUM
  266. SULFASALAZINE [Concomitant]
     Active Substance: SULFASALAZINE
  267. ALBUTEROL SULFATE [Concomitant]
     Active Substance: ALBUTEROL SULFATE
  268. TYLENOL [Concomitant]
     Active Substance: ACETAMINOPHEN
  269. TYLENOL WITH CODEINE [Concomitant]
     Active Substance: ACETAMINOPHEN\CODEINE PHOSPHATE
  270. VITAMIN D3 [Concomitant]
     Active Substance: CHOLECALCIFEROL
  271. XELJANZ [Concomitant]
     Active Substance: TOFACITINIB CITRATE
  272. ZESTRIL [Concomitant]
     Active Substance: LISINOPRIL
  273. ZOPICLONE [Concomitant]
     Active Substance: ZOPICLONE

REACTIONS (66)
  - Abdominal discomfort [Not Recovered/Not Resolved]
  - Abdominal pain upper [Not Recovered/Not Resolved]
  - Adjustment disorder with depressed mood [Not Recovered/Not Resolved]
  - Amnesia [Not Recovered/Not Resolved]
  - Arthropathy [Not Recovered/Not Resolved]
  - Autoimmune disorder [Not Recovered/Not Resolved]
  - Blister [Not Recovered/Not Resolved]
  - Blood cholesterol increased [Not Recovered/Not Resolved]
  - Breast cancer stage II [Not Recovered/Not Resolved]
  - Bursitis [Not Recovered/Not Resolved]
  - C-reactive protein abnormal [Not Recovered/Not Resolved]
  - Confusional state [Not Recovered/Not Resolved]
  - Decreased appetite [Not Recovered/Not Resolved]
  - Deep vein thrombosis postoperative [Not Recovered/Not Resolved]
  - Delirium [Not Recovered/Not Resolved]
  - Diarrhoea [Not Recovered/Not Resolved]
  - Discomfort [Not Recovered/Not Resolved]
  - Drug intolerance [Not Recovered/Not Resolved]
  - Duodenal ulcer perforation [Not Recovered/Not Resolved]
  - Ear pain [Not Recovered/Not Resolved]
  - Fibromyalgia [Not Recovered/Not Resolved]
  - Gait disturbance [Not Recovered/Not Resolved]
  - Gait inability [Not Recovered/Not Resolved]
  - Gastrointestinal disorder [Not Recovered/Not Resolved]
  - Grip strength decreased [Not Recovered/Not Resolved]
  - Memory impairment [Not Recovered/Not Resolved]
  - X-ray abnormal [Not Recovered/Not Resolved]
  - Mobility decreased [Not Recovered/Not Resolved]
  - Weight decreased [Not Recovered/Not Resolved]
  - General physical health deterioration [Not Recovered/Not Resolved]
  - Condition aggravated [Not Recovered/Not Resolved]
  - Drug hypersensitivity [Not Recovered/Not Resolved]
  - Folliculitis [Not Recovered/Not Resolved]
  - Wound infection [Not Recovered/Not Resolved]
  - Adverse drug reaction [Not Recovered/Not Resolved]
  - Alopecia [Not Recovered/Not Resolved]
  - Anxiety [Not Recovered/Not Resolved]
  - Arthralgia [Not Recovered/Not Resolved]
  - Asthenia [Not Recovered/Not Resolved]
  - Asthma [Not Recovered/Not Resolved]
  - Chest pain [Not Recovered/Not Resolved]
  - Contusion [Not Recovered/Not Resolved]
  - Depression [Not Recovered/Not Resolved]
  - Dizziness [Not Recovered/Not Resolved]
  - Dry mouth [Not Recovered/Not Resolved]
  - Dyspepsia [Not Recovered/Not Resolved]
  - Dyspnoea [Not Recovered/Not Resolved]
  - Fatigue [Not Recovered/Not Resolved]
  - Infection [Not Recovered/Not Resolved]
  - Insomnia [Not Recovered/Not Resolved]
  - Migraine [Not Recovered/Not Resolved]
  - Muscular weakness [Not Recovered/Not Resolved]
  - Nausea [Not Recovered/Not Resolved]
  - Pneumonia [Not Recovered/Not Resolved]
  - Pulmonary fibrosis [Not Recovered/Not Resolved]
  - Respiratory disorder [Not Recovered/Not Resolved]
  - Sleep disorder [Not Recovered/Not Resolved]
  - Hepatic enzyme increased [Not Recovered/Not Resolved]
  - Contraindicated product administered [Not Recovered/Not Resolved]
  - Drug ineffective [Not Recovered/Not Resolved]
  - Incorrect route of product administration [Not Recovered/Not Resolved]
  - Maternal exposure during pregnancy [Not Recovered/Not Resolved]
  - Medication error [Not Recovered/Not Resolved]
  - Prescribed underdose [Not Recovered/Not Resolved]
  - Exposure during pregnancy [Not Recovered/Not Resolved]
  - Intentional product use issue [Unknown]
